FAERS Safety Report 6885435-X (Version None)
Quarter: 2010Q3

REPORT INFORMATION
  Report Type: 
  Country: None (occurrence: None)
  Receive Date: 20100729
  Receipt Date: 20090129
  Transmission Date: 20110219
  Serious: No
  Sender: FDA-Public Use
  Company Number: US-PFIZER INC-2009152010

PATIENT
  Sex: Male
  Weight: 64.399 kg

DRUGS (1)
  1. CELEBREX [Suspect]
     Indication: ARTHRITIS
     Dosage: 200 MG, 1X/DAY
     Dates: start: 20081115, end: 20081119

REACTIONS (2)
  - DRUG INEFFECTIVE [None]
  - NAUSEA [None]
